FAERS Safety Report 23422840 (Version 1)
Quarter: 2024Q1

REPORT INFORMATION
  Report Type: Spontaneous
  Country: US (occurrence: US)
  Receive Date: 20240119
  Receipt Date: 20240119
  Transmission Date: 20240410
  Serious: No
  Sender: FDA-Public Use
  Company Number: US-BRISTOL-MYERS SQUIBB COMPANY-2024-010222

PATIENT
  Age: 62 Year
  Sex: Male

DRUGS (1)
  1. REVLIMID [Suspect]
     Active Substance: LENALIDOMIDE
     Indication: Plasma cell myeloma
     Dosage: FREQUENCY: DAILY FOR 7 DAYS ON, THEN 7 DAYS OFF.
     Route: 048

REACTIONS (4)
  - Diarrhoea [Unknown]
  - Fatigue [Unknown]
  - Product supply issue [Unknown]
  - Off label use [Unknown]
